FAERS Safety Report 8504093-1 (Version None)
Quarter: 2012Q3

REPORT INFORMATION
  Report Type: 
  Country: None (occurrence: None)
  Receive Date: 20120711
  Receipt Date: 20120706
  Transmission Date: 20120928
  Serious: Yes (Hospitalization, Other)
  Sender: FDA-Public Use
  Company Number: PT-BAXTER-2012BAX007121

PATIENT
  Age: 69 Year
  Sex: Female

DRUGS (7)
  1. EPOGEN [Concomitant]
     Route: 065
  2. EXTRANEAL [Suspect]
     Route: 033
     Dates: start: 20091007
  3. VITAMIN D [Concomitant]
     Route: 065
  4. NUTRINEAL [Suspect]
     Route: 033
     Dates: start: 20091007
  5. INSULIN [Concomitant]
     Route: 065
  6. IRON [Concomitant]
     Route: 042
  7. PHYSIONEAL 40 GLUCOSE 1,36% P/V / 13,6 MG/ML [Suspect]
     Route: 033
     Dates: start: 20091007

REACTIONS (3)
  - SEPSIS [None]
  - PERITONITIS BACTERIAL [None]
  - ARTHRITIS BACTERIAL [None]
